FAERS Safety Report 4511410-6 (Version None)
Quarter: 2004Q4

REPORT INFORMATION
  Report Type: 
  Country: None (occurrence: None)
  Receive Date: 20041129
  Receipt Date: 20040315
  Transmission Date: 20050328
  Serious: No
  Sender: FDA-Public Use
  Company Number: US-BRISTOL-MYERS SQUIBB COMPANY-12657094

PATIENT
  Age: 37 Year
  Sex: Female

DRUGS (3)
  1. ABILIFY [Suspect]
     Indication: DEPRESSION
     Dosage: INCREASED TO 30 MG/DAY THEN IN SEP-2003 DOSE WAS DECREASED TO 10 MG/DAY.
     Route: 048
     Dates: start: 20030401
  2. KLONOPIN [Concomitant]
  3. PROZAC [Concomitant]

REACTIONS (2)
  - NORMAL NEWBORN [None]
  - PREGNANCY [None]
